FAERS Safety Report 24119301 (Version 3)
Quarter: 2024Q3

REPORT INFORMATION
  Report Type: Spontaneous
  Country: US (occurrence: US)
  Receive Date: 20240722
  Receipt Date: 20240923
  Transmission Date: 20241017
  Serious: Yes (Death, Hospitalization)
  Sender: KARYOPHARM THERAPEUTICS
  Company Number: US-KARYOPHARM-2024KPT001256

PATIENT

DRUGS (2)
  1. XPOVIO [Suspect]
     Active Substance: SELINEXOR
     Indication: Plasma cell myeloma
     Dosage: 80 MG, 2X/WEEK
     Route: 048
     Dates: start: 20240619
  2. XPOVIO [Suspect]
     Active Substance: SELINEXOR
     Dosage: 60 MG, 2X/WEEK
     Route: 048
     Dates: start: 2024, end: 2024

REACTIONS (3)
  - Death [Fatal]
  - Asthenia [Unknown]
  - Nausea [Unknown]

NARRATIVE: CASE EVENT DATE: 20240101
